FAERS Safety Report 5282501-X (Version None)
Quarter: 2007Q1

REPORT INFORMATION
  Report Type: 
  Country: None (occurrence: None)
  Receive Date: 20070326
  Receipt Date: 20070312
  Transmission Date: 20070707
  Serious: Yes (Other)
  Sender: FDA-Public Use
  Company Number: 2007SP004688

PATIENT
  Age: 64 Year
  Sex: Female

DRUGS (1)
  1. INTRON A [Suspect]
     Indication: MALIGNANT MELANOMA
     Dosage: SEE IMAGE
     Dates: end: 20070131

REACTIONS (3)
  - CONVULSION [None]
  - DIARRHOEA [None]
  - HYPONATRAEMIA [None]
